FAERS Safety Report 4414955-2 (Version None)
Quarter: 2004Q3

REPORT INFORMATION
  Report Type: 
  Country: None (occurrence: None)
  Receive Date: 20040803
  Receipt Date: 20040803
  Transmission Date: 20050211
  Serious: Yes (Hospitalization)
  Sender: FDA-Public Use
  Company Number: None

PATIENT
  Age: 74 Year
  Sex: Female
  Weight: 59 kg

DRUGS (12)
  1. EPITIFIBITIDE (INTEGRILIN) [Suspect]
     Indication: ANTIPLATELET THERAPY
     Dosage: SEE IMAGE
     Route: 042
     Dates: start: 20040726, end: 20040727
  2. HEPARIN [Suspect]
     Dosage: 2660 UNIT IV
     Route: 042
     Dates: start: 20040726
  3. MIDAZOLAM [Concomitant]
  4. FENTANYL [Concomitant]
  5. NITROGLYCERIN [Concomitant]
  6. DROPERDOL [Concomitant]
  7. ASPIRIN [Concomitant]
  8. PEPCID [Concomitant]
  9. CLOPIDOGREL [Concomitant]
  10. ACETYLCYSTEINE [Concomitant]
  11. SOLU-MEDROL [Concomitant]
  12. DIPHENHYDRAMINE [Concomitant]

REACTIONS (3)
  - BLOOD CREATINE PHOSPHOKINASE MB INCREASED [None]
  - POST PROCEDURAL HAEMATOMA [None]
  - WOUND SECRETION [None]
